FAERS Safety Report 17427941 (Version 2)
Quarter: 2020Q1

REPORT INFORMATION
  Report Type: Spontaneous
  Country: AT (occurrence: AT)
  Receive Date: 20200218
  Receipt Date: 20200305
  Transmission Date: 20200409
  Serious: Yes (Other)
  Sender: FDA-Public Use
  Company Number: NVSC2020AT039821

PATIENT
  Age: 22 Year
  Sex: Male

DRUGS (4)
  1. DEPAKINE CRONO [Suspect]
     Active Substance: VALPROIC ACID
     Dosage: 500 MG
     Route: 065
  2. LAMOTRIGINE. [Suspect]
     Active Substance: LAMOTRIGINE
     Dosage: UNK UNK, UNK
     Route: 065
     Dates: start: 2019
  3. LAMOTRIGINE. [Suspect]
     Active Substance: LAMOTRIGINE
     Indication: EPILEPSY
     Dosage: UNK
     Route: 065
  4. DEPAKINE CRONO [Suspect]
     Active Substance: VALPROIC ACID
     Indication: EPILEPSY
     Dosage: UNK UNK, UNK
     Route: 065
     Dates: start: 2019

REACTIONS (3)
  - Lennox-Gastaut syndrome [Unknown]
  - Drug ineffective [Unknown]
  - Alopecia [Unknown]

NARRATIVE: CASE EVENT DATE: 201810
